FAERS Safety Report 20770568 (Version 2)
Quarter: 2022Q2

REPORT INFORMATION
  Report Type: Spontaneous
  Country: US (occurrence: US)
  Receive Date: 20220429
  Receipt Date: 20220514
  Transmission Date: 20220720
  Serious: No
  Sender: FDA-Public Use
  Company Number: US-GLAXOSMITHKLINE-US2022068792

PATIENT

DRUGS (1)
  1. FLONASE [Suspect]
     Active Substance: FLUTICASONE PROPIONATE
     Indication: Sinusitis
     Dosage: UNK

REACTIONS (8)
  - Sneezing [Unknown]
  - Poor quality sleep [Unknown]
  - Headache [Unknown]
  - Abdominal discomfort [Unknown]
  - Parosmia [Not Recovered/Not Resolved]
  - Candida infection [Unknown]
  - Off label use [Unknown]
  - Product complaint [Unknown]
